FAERS Safety Report 20559972 (Version 3)
Quarter: 2022Q2

REPORT INFORMATION
  Report Type: Spontaneous
  Country: DE (occurrence: DE)
  Receive Date: 20220307
  Receipt Date: 20220404
  Transmission Date: 20220720
  Serious: Yes (Hospitalization)
  Sender: FDA-Public Use
  Company Number: DE-GLENMARK PHARMACEUTICALS-2021GMK068397

PATIENT
  Age: 81 Year
  Sex: Male

DRUGS (7)
  1. LEVETIRACETAM [Suspect]
     Active Substance: LEVETIRACETAM
     Indication: Hypoperfusion
     Dosage: 1000 MILLIGRAM, QD, 500 MILLIGRAM, 2X/DAY BID (1-0-1)
     Route: 065
  2. CLOPIDOGREL [Suspect]
     Active Substance: CLOPIDOGREL BISULFATE
     Indication: Cardiovascular event prophylaxis
     Dosage: UNK
     Route: 065
  3. CLOPIDOGREL [Suspect]
     Active Substance: CLOPIDOGREL BISULFATE
     Indication: Hypoperfusion
     Dosage: 75 MILLIGRAM, QD
     Route: 048
     Dates: start: 20210929
  4. CLOPIDOGREL [Suspect]
     Active Substance: CLOPIDOGREL BISULFATE
     Dosage: 75 MILLIGRAM, OD (EVERY MORNING AT BREAKF
     Route: 048
     Dates: start: 202106, end: 20210912
  5. ATORVASTATIN [Concomitant]
     Active Substance: ATORVASTATIN
     Indication: Cerebral ischaemia
     Dosage: 80 MILLIGRAM (80MG)
     Route: 065
     Dates: start: 202106
  6. PROSTAGUTT [Concomitant]
     Indication: Product used for unknown indication
     Dosage: UNK
     Route: 065
  7. PSYLLIUM [Concomitant]
     Active Substance: PLANTAGO SEED
     Indication: Product used for unknown indication
     Dosage: UNK
     Route: 065

REACTIONS (10)
  - Aphasia [Recovered/Resolved]
  - Impaired driving ability [Unknown]
  - Blood urine present [Recovered/Resolved]
  - Wound haemorrhage [Recovered/Resolved]
  - Therapy cessation [Unknown]
  - Contusion [Unknown]
  - Product use in unapproved indication [Unknown]
  - Prostatic adenoma [Recovered/Resolved]
  - Product use issue [Unknown]
  - Behaviour disorder [Unknown]

NARRATIVE: CASE EVENT DATE: 20210929
